FAERS Safety Report 9247966 (Version 1)
Quarter: 2013Q2

REPORT INFORMATION
  Report Type: Spontaneous
  Country: US (occurrence: None)
  Receive Date: 20130419
  Receipt Date: 20130419
  Transmission Date: 20140414
  Serious: No
  Sender: FDA-Public Use
  Company Number: None

PATIENT
  Age: 27 Year
  Sex: Male
  Weight: 122.47 kg

DRUGS (2)
  1. MORPHINE SULFATE [Suspect]
  2. MORPHINE SULFATE ER [Suspect]

REACTIONS (1)
  - Blood testosterone decreased [None]
